FAERS Safety Report 18212338 (Version 1)
Quarter: 2020Q3

REPORT INFORMATION
  Report Type: Spontaneous
  Country: IT (occurrence: IT)
  Receive Date: 20200831
  Receipt Date: 20200831
  Transmission Date: 20201103
  Serious: Yes (Other)
  Sender: FDA-Public Use
  Company Number: NVSC2020IT238500

PATIENT
  Age: 57 Year
  Sex: Female

DRUGS (2)
  1. GEMCITABINE. [Suspect]
     Active Substance: GEMCITABINE
     Indication: CUTANEOUS T-CELL LYMPHOMA
     Dosage: 1000 MG/M2 11 CYCLES
     Route: 065
     Dates: start: 2015
  2. OXALIPLATIN. [Suspect]
     Active Substance: OXALIPLATIN
     Indication: CUTANEOUS T-CELL LYMPHOMA
     Dosage: 100 MG/M2, 11 CYCLES
     Route: 065
     Dates: start: 2015

REACTIONS (3)
  - Cutaneous T-cell lymphoma [Unknown]
  - Malignant neoplasm progression [Unknown]
  - Product use in unapproved indication [Unknown]
